FAERS Safety Report 5666975-8 (Version None)
Quarter: 2008Q1

REPORT INFORMATION
  Report Type: 
  Country: None (occurrence: None)
  Receive Date: 20080315
  Receipt Date: 20080108
  Transmission Date: 20080703
  Serious: No
  Sender: FDA-Public Use
  Company Number: US-ABBOTT-08P-163-0432817-00

PATIENT
  Sex: Female
  Weight: 59.02 kg

DRUGS (6)
  1. HUMIRA [Suspect]
     Indication: RHEUMATOID ARTHRITIS
     Route: 058
     Dates: start: 20071228, end: 20080115
  2. BUSPIRONE HYDROCHLORIDE [Concomitant]
     Indication: ANXIETY
  3. SERTRALINE [Concomitant]
     Indication: INSOMNIA
  4. TRAZODONE HCL [Concomitant]
     Indication: INSOMNIA
  5. CAPTOPRIL [Concomitant]
     Indication: HYPERTENSION
  6. NAPROXEN [Concomitant]
     Indication: ANTIINFLAMMATORY THERAPY

REACTIONS (8)
  - ARTHRALGIA [None]
  - DRUG INEFFECTIVE [None]
  - JOINT STIFFNESS [None]
  - NASOPHARYNGITIS [None]
  - PYREXIA [None]
  - RHEUMATOID ARTHRITIS [None]
  - SINUS HEADACHE [None]
  - SINUSITIS [None]
